FAERS Safety Report 14897584 (Version 1)
Quarter: 2018Q2

REPORT INFORMATION
  Report Type: Spontaneous
  Country: DE (occurrence: DE)
  Receive Date: 20180515
  Receipt Date: 20180515
  Transmission Date: 20180711
  Serious: Yes (Other)
  Sender: FDA-Public Use
  Company Number: DE-TEVA-2018-DE-892198

PATIENT
  Age: 40 Year
  Sex: Female
  Weight: 108 kg

DRUGS (2)
  1. OLANZAPINE. [Suspect]
     Active Substance: OLANZAPINE
     Route: 065
  2. FEMIBION (NEM) [Concomitant]
     Route: 065

REACTIONS (1)
  - Gestational diabetes [Recovered/Resolved]
